FAERS Safety Report 19088732 (Version 1)
Quarter: 2021Q2

REPORT INFORMATION
  Report Type: Spontaneous
  Country: JP (occurrence: JP)
  Receive Date: 20210403
  Receipt Date: 20210403
  Transmission Date: 20210717
  Serious: Yes (Other)
  Sender: FDA-Public Use
  Company Number: JP-SUN PHARMACEUTICAL INDUSTRIES LTD-2021RR-288440

PATIENT
  Age: 70 Year
  Sex: Female
  Weight: 60 kg

DRUGS (2)
  1. TS?1 [Suspect]
     Active Substance: GIMERACIL\OTERACIL\TEGAFUR
     Indication: ADENOCARCINOMA PANCREAS
     Dosage: 100 MILLIGRAM/SQ. METER ON DAYS 1?14 OF A 21?DAY CYCLE
     Route: 065
  2. GEMCITABINE. [Suspect]
     Active Substance: GEMCITABINE
     Indication: ADENOCARCINOMA PANCREAS
     Dosage: 800 MILLIGRAM/SQ. METER ON DAYS 1, 8; REPEATED EVERY 3WEEKS FOR 2 CYCLES
     Route: 065

REACTIONS (3)
  - Neutropenia [Recovered/Resolved]
  - Decreased appetite [Unknown]
  - Metastases to liver [Unknown]
